FAERS Safety Report 5832697 (Version 3)
Quarter: 2016Q1

REPORT INFORMATION
  Report Type: Spontaneous
  Country: IE (occurrence: IE)
  Receive Date: 20050707
  Receipt Date: 20160205
  Transmission Date: 20160526
  Serious: Yes (Congenital Anomaly, Other)
  Sender: FDA-Public Use
  Company Number: IE-BRISTOL-MYERS SQUIBB COMPANY-13020557

PATIENT
  Age: 0 Day
  Sex: Male

DRUGS (4)
  1. GLUCOPHAGE [Suspect]
     Active Substance: METFORMIN HYDROCHLORIDE
     Indication: PRODUCT USED FOR UNKNOWN INDICATION
     Dosage: 1500 MG, QD
     Route: 064
  2. PROGESTERONE. [Suspect]
     Active Substance: PROGESTERONE
     Indication: PRODUCT USED FOR UNKNOWN INDICATION
     Dosage: 200 MG, UNK
     Route: 064
     Dates: start: 200406
  3. CLOMID [Suspect]
     Active Substance: CLOMIPHENE CITRATE
     Indication: PRODUCT USED FOR UNKNOWN INDICATION
     Dosage: 50 UNK, QD
     Route: 064
     Dates: start: 200402
  4. CLOMID [Suspect]
     Active Substance: CLOMIPHENE CITRATE
     Dosage: 100 MG, QD
     Route: 064

REACTIONS (7)
  - Phalangeal agenesis [Unknown]
  - Syndactyly [Unknown]
  - Tibial torsion [Unknown]
  - Foetal exposure during pregnancy [Unknown]
  - Congenital anomaly [Unknown]
  - Neonatal disorder [Unknown]
  - Limb reduction defect [Unknown]

NARRATIVE: CASE EVENT DATE: 20050508
